FAERS Safety Report 6295836-9 (Version None)
Quarter: 2009Q3

REPORT INFORMATION
  Report Type: 
  Country: None (occurrence: None)
  Receive Date: 20090731
  Receipt Date: 20090717
  Transmission Date: 20100115
  Serious: Yes (Other)
  Sender: FDA-Public Use
  Company Number: 8049154

PATIENT
  Age: 16 Year
  Sex: Male
  Weight: 53.64 kg

DRUGS (1)
  1. CIMZIA [Suspect]
     Indication: CROHN'S DISEASE
     Dosage: 400 MG /M SC
     Route: 058
     Dates: start: 20090317

REACTIONS (4)
  - ERYTHEMA NODOSUM [None]
  - EYE INFECTION [None]
  - RASH [None]
  - SWELLING FACE [None]
